FAERS Safety Report 19864605 (Version 1)
Quarter: 2021Q3

REPORT INFORMATION
  Report Type: Other
  Country: US (occurrence: US)
  Receive Date: 20210921
  Receipt Date: 20210921
  Transmission Date: 20211014
  Serious: Yes (Other)
  Sender: FDA-Public Use
  Company Number: US-ACORDA-ACO_169752_2021

PATIENT
  Age: 74 Year
  Sex: Male

DRUGS (2)
  1. INBRIJA [Suspect]
     Active Substance: LEVODOPA
     Indication: PARKINSON^S DISEASE
     Dosage: 2 DOSAGE FORM, PRN (AT 6 AM, 9 AM, 7 PM, BUT UPTO 5 TIMES A DAY)
     Dates: start: 20201215
  2. INBRIJA [Suspect]
     Active Substance: LEVODOPA
     Indication: ON AND OFF PHENOMENON

REACTIONS (3)
  - Pemphigoid [Recovering/Resolving]
  - Paraesthesia [Not Recovered/Not Resolved]
  - Condition aggravated [Recovering/Resolving]

NARRATIVE: CASE EVENT DATE: 20210321
